FAERS Safety Report 7407184-1 (Version None)
Quarter: 2011Q2

REPORT INFORMATION
  Report Type: 
  Country: None (occurrence: None)
  Receive Date: 20110411
  Receipt Date: 20110407
  Transmission Date: 20111010
  Serious: Yes (Hospitalization)
  Sender: FDA-Public Use
  Company Number: US-B.I. PHARMACEUTICALS,INC./RIDGEFIELD-2011-BP-10279BP

PATIENT
  Sex: Male

DRUGS (5)
  1. PRADAXA [Suspect]
     Indication: ANTICOAGULANT THERAPY
     Dosage: 150 MG
     Route: 048
     Dates: start: 20110406
  2. PRADAXA [Suspect]
     Indication: ATRIAL FIBRILLATION
  3. ZANTAC [Concomitant]
     Indication: HERNIA
  4. PRADAXA [Suspect]
     Indication: CORONARY ARTERY BYPASS
     Dosage: 150 MG
     Route: 048
     Dates: start: 20110301, end: 20110310
  5. ZANTAC [Concomitant]
     Indication: DYSPEPSIA
     Dosage: 600 MG
     Route: 048

REACTIONS (1)
  - DYSPEPSIA [None]
